FAERS Safety Report 25555404 (Version 1)
Quarter: 2025Q3

REPORT INFORMATION
  Report Type: Spontaneous
  Country: TW (occurrence: TW)
  Receive Date: 20250715
  Receipt Date: 20250715
  Transmission Date: 20251021
  Serious: Yes (Other)
  Sender: ALEXION PHARMACEUTICALS
  Company Number: TW-ASTRAZENECA-202507ASI006933TW

PATIENT
  Age: 56 Year
  Sex: Male
  Weight: 64 kg

DRUGS (9)
  1. BRILINTA [Suspect]
     Active Substance: TICAGRELOR
     Indication: Myocardial infarction
     Dosage: 90 MILLIGRAM, BID
     Dates: start: 20250630, end: 20250630
  2. ASPIRIN [Concomitant]
     Active Substance: ASPIRIN
  3. ASPIRIN [Concomitant]
     Active Substance: ASPIRIN
     Dosage: 100 MILLIGRAM, QD
     Dates: start: 20250630
  4. CLOPIDOGREL [Concomitant]
     Active Substance: CLOPIDOGREL BISULFATE
     Indication: Myocardial infarction
  5. CLOPIDOGREL [Concomitant]
     Active Substance: CLOPIDOGREL BISULFATE
     Dosage: 75 MILLIGRAM, QD
     Dates: start: 20250630
  6. HEPARIN [Concomitant]
     Active Substance: HEPARIN SODIUM
  7. ATORVASTATIN [Concomitant]
     Active Substance: ATORVASTATIN
     Indication: Coronary artery disease
     Dosage: 40 MILLIGRAM, QD
     Dates: start: 20250630
  8. ENOXAPARIN [Concomitant]
     Active Substance: ENOXAPARIN
     Indication: Coronary artery disease
     Dosage: 60 MILLIGRAM, Q12H
     Dates: start: 20250630
  9. CARVEDILOL [Concomitant]
     Active Substance: CARVEDILOL

REACTIONS (4)
  - Wheezing [Recovered/Resolved]
  - Accelerated idioventricular rhythm [Unknown]
  - Ventricular tachycardia [Unknown]
  - Upper airway obstruction [Unknown]

NARRATIVE: CASE EVENT DATE: 20250630
